FAERS Safety Report 8367345-4 (Version None)
Quarter: 2012Q2

REPORT INFORMATION
  Report Type: 
  Country: None (occurrence: None)
  Receive Date: 20120517
  Receipt Date: 20120515
  Transmission Date: 20120825
  Serious: Yes (Other)
  Sender: FDA-Public Use
  Company Number: US-BAYER-2011-117753

PATIENT
  Age: 68 Year
  Sex: Male

DRUGS (2)
  1. COUMADIN [Concomitant]
  2. BETASERON [Suspect]
     Indication: MULTIPLE SCLEROSIS
     Dosage: 0.3 MG, QOD
     Route: 058
     Dates: start: 20080324

REACTIONS (3)
  - INTERNATIONAL NORMALISED RATIO INCREASED [None]
  - ANAEMIA [None]
  - BLOOD URINE PRESENT [None]
